FAERS Safety Report 6749306-1 (Version None)
Quarter: 2010Q2

REPORT INFORMATION
  Report Type: 
  Country: None (occurrence: None)
  Receive Date: 20100601
  Receipt Date: 20100525
  Transmission Date: 20101027
  Serious: Yes (Disabling, Other)
  Sender: FDA-Public Use
  Company Number: US-BAYER-201015973BCC

PATIENT
  Age: 66 Year
  Sex: Male
  Weight: 88 kg

DRUGS (4)
  1. ASPIRIN [Suspect]
     Indication: INFLAMMATION
     Dosage: TOTAL DAILY DOSE: 975 MG  UNIT DOSE: 325 MG
     Route: 048
     Dates: start: 20100301, end: 20100501
  2. ASPIRIN [Suspect]
     Dosage: TOTAL DAILY DOSE: 1300 MG  UNIT DOSE: 325 MG
     Route: 048
     Dates: start: 20100515
  3. ASPIRIN [Suspect]
     Dosage: TOTAL DAILY DOSE: 750 MG  UNIT DOSE: 325 MG
     Route: 048
     Dates: start: 20100201, end: 20100201
  4. VITAMIN B-12 [Concomitant]
     Route: 065

REACTIONS (3)
  - ABASIA [None]
  - ASTHENIA [None]
  - VOMITING [None]
